FAERS Safety Report 11507475 (Version 1)
Quarter: 2015Q3

REPORT INFORMATION
  Report Type: Spontaneous
  Country: US (occurrence: US)
  Receive Date: 20150903
  Receipt Date: 20150903
  Transmission Date: 20151125
  Serious: No
  Sender: FDA-Public Use
  Company Number: US-ELI_LILLY_AND_COMPANY-US200908003497

PATIENT
  Age: 74 Year
  Sex: Male

DRUGS (4)
  1. LANTUS [Concomitant]
     Active Substance: INSULIN GLARGINE
  2. HUMALOG [Suspect]
     Active Substance: INSULIN LISPRO
  3. ORAL ANTIDIABETICS [Concomitant]
     Active Substance: UNSPECIFIED INGREDIENT
     Indication: DIABETES MELLITUS
  4. HUMALOG [Suspect]
     Active Substance: INSULIN LISPRO
     Dosage: UNK, AS NEEDED

REACTIONS (5)
  - Blood glucose increased [Recovered/Resolved]
  - Drug ineffective [Recovered/Resolved]
  - Blood glucose increased [Recovered/Resolved]
  - Drug ineffective [Recovered/Resolved]
  - Medication error [Recovered/Resolved]

NARRATIVE: CASE EVENT DATE: 200904
